FAERS Safety Report 18970181 (Version 2)
Quarter: 2021Q1

REPORT INFORMATION
  Report Type: Spontaneous
  Country: US (occurrence: US)
  Receive Date: 20210304
  Receipt Date: 20210322
  Transmission Date: 20210420
  Serious: Yes (Other)
  Sender: FDA-Public Use
  Company Number: US-PFIZER INC-2021183147

PATIENT
  Age: 79 Year
  Sex: Female
  Weight: 63.5 kg

DRUGS (2)
  1. IBRANCE [Suspect]
     Active Substance: PALBOCICLIB
     Indication: BREAST CANCER METASTATIC
     Dosage: 125 MG, CYCLIC [DAILY FOR 21 DAYS 7 DAYS]
  2. PROCRIT [Suspect]
     Active Substance: ERYTHROPOIETIN
     Indication: BLOOD DISORDER PROPHYLAXIS
     Dosage: UNK

REACTIONS (15)
  - Off label use [Unknown]
  - Fatigue [Not Recovered/Not Resolved]
  - Lethargy [Unknown]
  - Decreased appetite [Not Recovered/Not Resolved]
  - Depressed level of consciousness [Not Recovered/Not Resolved]
  - Haemoglobin decreased [Recovering/Resolving]
  - Illness [Recovered/Resolved]
  - Anaemia [Not Recovered/Not Resolved]
  - Asthenia [Unknown]
  - Diarrhoea [Recovered/Resolved]
  - Weight decreased [Unknown]
  - Blood potassium decreased [Unknown]
  - Dysstasia [Not Recovered/Not Resolved]
  - Dizziness [Not Recovered/Not Resolved]
  - Red blood cell count decreased [Recovering/Resolving]

NARRATIVE: CASE EVENT DATE: 202102
